FAERS Safety Report 7841220-3 (Version None)
Quarter: 2011Q4

REPORT INFORMATION
  Report Type: 
  Country: None (occurrence: None)
  Receive Date: 20111020
  Receipt Date: 20111010
  Transmission Date: 20120403
  Serious: Yes (Hospitalization)
  Sender: FDA-Public Use
  Company Number: CIP11002620

PATIENT
  Age: 77 Year
  Sex: Female

DRUGS (3)
  1. PRILOSEC [Concomitant]
  2. BENICAR [Concomitant]
  3. ACTONEL [Suspect]
     Indication: OSTEOPENIA
     Dosage: 150 MG ONCE MONTHLY, ORAL
     Route: 048
     Dates: start: 20110601, end: 20110926

REACTIONS (5)
  - PAIN IN JAW [None]
  - FACIAL PAIN [None]
  - HEADACHE [None]
  - EYE DISORDER [None]
  - DRUG EFFECT DECREASED [None]
